FAERS Safety Report 6720564-2 (Version None)
Quarter: 2010Q2

REPORT INFORMATION
  Report Type: 
  Country: None (occurrence: None)
  Receive Date: 20100510
  Receipt Date: 20100331
  Transmission Date: 20101027
  Serious: Yes (Disabling)
  Sender: FDA-Public Use
  Company Number: 2010SP019352

PATIENT
  Age: 51 Year
  Sex: Male

DRUGS (7)
  1. PEG-INTRON [Suspect]
     Indication: HEPATITIS C
     Dosage: 120 MCG;QW;SC
     Route: 058
     Dates: start: 20090501, end: 20100401
  2. RIBAVIRIN [Suspect]
     Indication: HEPATITIS C
     Dosage: PO
     Route: 048
     Dates: start: 20090501, end: 20100401
  3. REMERON [Concomitant]
  4. ZYPREXA [Concomitant]
  5. PREVACID [Concomitant]
  6. TYLENOL (CAPLET) [Concomitant]
  7. M.V.I. [Concomitant]

REACTIONS (3)
  - AMNESIA [None]
  - PLATELET COUNT DECREASED [None]
  - WHITE BLOOD CELL COUNT DECREASED [None]
